FAERS Safety Report 6275484-7 (Version None)
Quarter: 2009Q3

REPORT INFORMATION
  Report Type: 
  Country: None (occurrence: None)
  Receive Date: 20090721
  Receipt Date: 20090713
  Transmission Date: 20100115
  Serious: Yes (Other)
  Sender: FDA-Public Use
  Company Number: US-JNJFOC-20090704722

PATIENT
  Sex: Male
  Weight: 29.94 kg

DRUGS (3)
  1. FENTANYL TRANSDERMAL SYSTEM [Suspect]
     Indication: ABDOMINAL PAIN
     Route: 062
  2. METFORMIN HCL [Concomitant]
     Indication: DIABETES MELLITUS
     Route: 048
  3. TRANQUILLIZER [Concomitant]
     Indication: DEPRESSION
     Route: 048

REACTIONS (7)
  - CONFUSIONAL STATE [None]
  - DECREASED APPETITE [None]
  - HALLUCINATION, VISUAL [None]
  - MALNUTRITION [None]
  - OXYGEN SATURATION DECREASED [None]
  - THINKING ABNORMAL [None]
  - WRONG TECHNIQUE IN DRUG USAGE PROCESS [None]
